FAERS Safety Report 16171322 (Version 1)
Quarter: 2019Q2

REPORT INFORMATION
  Report Type: Spontaneous
  Country: US (occurrence: US)
  Receive Date: 20190408
  Receipt Date: 20190408
  Transmission Date: 20190711
  Serious: No
  Sender: FDA-Public Use
  Company Number: US-TARO-2018TAR00781

PATIENT
  Age: 55 Year
  Sex: Male
  Weight: 65.31 kg

DRUGS (3)
  1. FLUOROURACIL TOPICAL CREAM USP 5% [Suspect]
     Active Substance: FLUOROURACIL
     Indication: ACTINIC KERATOSIS
     Dosage: ^A POINT ON THE FINGER,^ 2X/DAY
     Route: 061
     Dates: start: 20181010, end: 201810
  2. MULTIVITAMIN [Concomitant]
     Active Substance: VITAMINS
  3. FLUOROURACIL TOPICAL CREAM USP 5% [Suspect]
     Active Substance: FLUOROURACIL
     Dosage: ^LESS THAN A POINT ON THE FINGER,^ 2X/DAY
     Route: 061
     Dates: start: 201810

REACTIONS (6)
  - Product quality issue [Not Recovered/Not Resolved]
  - Application site erythema [Not Recovered/Not Resolved]
  - Scar [Recovered/Resolved]
  - Blister [Unknown]
  - Rash [Not Recovered/Not Resolved]
  - Application site hypersensitivity [Not Recovered/Not Resolved]

NARRATIVE: CASE EVENT DATE: 201810
